FAERS Safety Report 4848135-3 (Version None)
Quarter: 2005Q4

REPORT INFORMATION
  Report Type: 
  Country: None (occurrence: None)
  Receive Date: 20051208
  Receipt Date: 20051130
  Transmission Date: 20060501
  Serious: Yes (Hospitalization)
  Sender: FDA-Public Use
  Company Number: AU-BOEHRINGER INGELHEIM PHARMACEUTICALS, INC.-2005-BP-20866AU

PATIENT
  Age: 71 Year
  Sex: Female

DRUGS (6)
  1. MOBIC [Suspect]
     Route: 048
     Dates: start: 20041015, end: 20050111
  2. KARVEA [Concomitant]
     Route: 048
  3. SOMAC [Concomitant]
  4. ZOCOR [Concomitant]
     Route: 048
  5. PREMARIN (OESTROGENS, CONJUGATED) [Concomitant]
  6. ACETAMINOPHEN [Concomitant]

REACTIONS (16)
  - BREAST SWELLING [None]
  - BREAST TENDERNESS [None]
  - DISTURBANCE IN ATTENTION [None]
  - FATIGUE [None]
  - GASTROOESOPHAGEAL REFLUX DISEASE [None]
  - HEAD DISCOMFORT [None]
  - HYPOAESTHESIA ORAL [None]
  - JOINT SWELLING [None]
  - LACRIMATION INCREASED [None]
  - LYMPHADENOPATHY [None]
  - MALAISE [None]
  - OEDEMA PERIPHERAL [None]
  - PAIN [None]
  - SOCIAL AVOIDANT BEHAVIOUR [None]
  - SWELLING [None]
  - VISUAL ACUITY REDUCED [None]
